FAERS Safety Report 8966697 (Version 2)
Quarter: 2013Q1

REPORT INFORMATION
  Report Type: Spontaneous
  Country: US (occurrence: US)
  Receive Date: 20121217
  Receipt Date: 20130212
  Transmission Date: 20140127
  Serious: Yes (Life-Threatening, Hospitalization, Other)
  Sender: FDA-Public Use
  Company Number: US-JNJFOC-20121203803

PATIENT
  Age: 22 None
  Sex: Male

DRUGS (8)
  1. REMICADE [Suspect]
     Indication: COLITIS ULCERATIVE
     Route: 042
     Dates: start: 201110, end: 201212
  2. 6-MP [Suspect]
     Indication: COLITIS ULCERATIVE
     Route: 048
     Dates: start: 200903, end: 201212
  3. BACTRIM [Suspect]
     Indication: UPPER RESPIRATORY TRACT INFECTION
     Dosage: RECEIVED FOR 10DAYS
     Route: 048
     Dates: start: 201210, end: 2012
  4. BACTRIM [Suspect]
     Indication: BRONCHITIS
     Dosage: RECEIVED FOR 10DAYS
     Route: 048
     Dates: start: 201210, end: 2012
  5. PREDNISONE [Concomitant]
     Indication: COLITIS ULCERATIVE
     Route: 065
     Dates: start: 20121204, end: 20121214
  6. ASACOL [Concomitant]
     Indication: COLITIS ULCERATIVE
     Route: 065
     Dates: start: 200910, end: 201212
  7. CANASA [Concomitant]
     Indication: COLITIS ULCERATIVE
     Route: 054
     Dates: start: 200910, end: 201212
  8. NEXIUM [Concomitant]
     Indication: GASTROOESOPHAGEAL REFLUX DISEASE
     Route: 065
     Dates: start: 20090401

REACTIONS (12)
  - Bone marrow failure [Recovered/Resolved with Sequelae]
  - Cachexia [Unknown]
  - Tachycardia [Unknown]
  - Dehydration [Unknown]
  - Colitis ulcerative [Recovering/Resolving]
  - Upper respiratory tract infection [Unknown]
  - Infection [Unknown]
  - Arthralgia [Recovering/Resolving]
  - Rash [Recovering/Resolving]
  - Pain [Unknown]
  - Pyrexia [Unknown]
  - Anaemia [Recovered/Resolved with Sequelae]
